FAERS Safety Report 6692780-X (Version None)
Quarter: 2010Q2

REPORT INFORMATION
  Report Type: 
  Country: None (occurrence: None)
  Receive Date: 20100422
  Receipt Date: 20100412
  Transmission Date: 20101027
  Serious: Yes (Hospitalization)
  Sender: FDA-Public Use
  Company Number: US-JNJFOC-20100404359

PATIENT
  Age: 92 Year
  Sex: Female
  Weight: 61.24 kg

DRUGS (3)
  1. TYLENOL [Suspect]
     Route: 048
  2. TYLENOL [Suspect]
     Indication: BACK PAIN
     Route: 048
  3. ASPIRIN [Suspect]
     Indication: BACK PAIN
     Route: 048

REACTIONS (5)
  - DIARRHOEA [None]
  - ELECTROLYTE IMBALANCE [None]
  - NAUSEA [None]
  - PRODUCT QUALITY ISSUE [None]
  - VOMITING [None]
